FAERS Safety Report 7559230-2 (Version None)
Quarter: 2011Q2

REPORT INFORMATION
  Report Type: 
  Country: None (occurrence: None)
  Receive Date: 20110621
  Receipt Date: 20110607
  Transmission Date: 20111010
  Serious: Yes (Life-Threatening)
  Sender: FDA-Public Use
  Company Number: DE-RANBAXY-2011RR-45423

PATIENT
  Age: 59 Year
  Sex: Female

DRUGS (1)
  1. CEFUROXIME [Suspect]
     Indication: TOOTH DISORDER
     Dosage: UNK
     Route: 048
     Dates: start: 20110329

REACTIONS (7)
  - GENERAL PHYSICAL HEALTH DETERIORATION [None]
  - CYANOSIS [None]
  - TREMOR [None]
  - GENERALISED ERYTHEMA [None]
  - EYELID OEDEMA [None]
  - ANAPHYLACTIC REACTION [None]
  - TACHYCARDIA [None]
